FAERS Safety Report 25029219 (Version 1)
Quarter: 2025Q1

REPORT INFORMATION
  Report Type: Spontaneous
  Country: CN (occurrence: CN)
  Receive Date: 20250303
  Receipt Date: 20250303
  Transmission Date: 20250409
  Serious: Yes (Other)
  Sender: BEIGENE
  Company Number: CN-BEIGENE-BGN-2025-002949

PATIENT
  Age: 43 Year
  Weight: 70 kg

DRUGS (16)
  1. TISLELIZUMAB [Suspect]
     Active Substance: TISLELIZUMAB
     Indication: Squamous cell carcinoma of the parotid gland
     Dosage: 200 MILLIGRAM, Q3WK
  2. TISLELIZUMAB [Suspect]
     Active Substance: TISLELIZUMAB
     Dosage: 200 MILLIGRAM, Q3WK
     Route: 041
  3. TISLELIZUMAB [Suspect]
     Active Substance: TISLELIZUMAB
     Dosage: 200 MILLIGRAM, Q3WK
     Route: 041
  4. TISLELIZUMAB [Suspect]
     Active Substance: TISLELIZUMAB
     Dosage: 200 MILLIGRAM, Q3WK
  5. CISPLATIN [Suspect]
     Active Substance: CISPLATIN
     Indication: Squamous cell carcinoma of the parotid gland
  6. CISPLATIN [Suspect]
     Active Substance: CISPLATIN
  7. CISPLATIN [Suspect]
     Active Substance: CISPLATIN
     Dosage: 40 MILLIGRAM, Q3WK, D1-3
     Route: 041
  8. CISPLATIN [Suspect]
     Active Substance: CISPLATIN
     Dosage: 40 MILLIGRAM, Q3WK, D1-3
  9. CISPLATIN [Suspect]
     Active Substance: CISPLATIN
     Dosage: 40 MILLIGRAM, Q3WK, D1-3
  10. CISPLATIN [Suspect]
     Active Substance: CISPLATIN
     Dosage: 40 MILLIGRAM, Q3WK, D1-3
     Route: 041
  11. PACLITAXEL [Suspect]
     Active Substance: PACLITAXEL
     Indication: Squamous cell carcinoma of the parotid gland
  12. PACLITAXEL [Suspect]
     Active Substance: PACLITAXEL
     Dosage: 360 MILLIGRAM, Q3WK
     Route: 041
  13. PACLITAXEL [Suspect]
     Active Substance: PACLITAXEL
     Dosage: 360 MILLIGRAM, Q3WK
  14. CETUXIMAB [Suspect]
     Active Substance: CETUXIMAB
     Indication: Squamous cell carcinoma of the parotid gland
  15. CETUXIMAB [Suspect]
     Active Substance: CETUXIMAB
     Dosage: 0.9 GRAM, Q3WK
     Route: 041
  16. CETUXIMAB [Suspect]
     Active Substance: CETUXIMAB
     Dosage: 0.9 GRAM, Q3WK

REACTIONS (1)
  - Hepatic enzyme increased [Recovering/Resolving]
